FAERS Safety Report 9463297 (Version 1)
Quarter: 2013Q3

REPORT INFORMATION
  Report Type: Spontaneous
  Country: US (occurrence: US)
  Receive Date: 20130819
  Receipt Date: 20130819
  Transmission Date: 20140515
  Serious: No
  Sender: FDA-Public Use
  Company Number: US-009507513-1308USA005338

PATIENT
  Age: 68 Year
  Sex: Female

DRUGS (7)
  1. ZIOPTAN [Suspect]
     Indication: GLAUCOMA
     Dosage: 1 GTT, QD (ONE DROP IN EACH EYE/ONCE DAILY)
     Route: 047
     Dates: start: 20130807
  2. RESTASIS [Concomitant]
     Dosage: UNK
  3. ISTALOL [Concomitant]
     Dosage: UNK
  4. CRESTOR [Concomitant]
     Dosage: UNK
  5. PERCOCET [Concomitant]
     Dosage: UNK
  6. VALIUM [Concomitant]
     Dosage: 5 MG, QD
  7. NAPROXEN [Concomitant]
     Dosage: 500 MG, BID

REACTIONS (1)
  - Eye pain [Not Recovered/Not Resolved]
